FAERS Safety Report 9478108 (Version 3)
Quarter: 2015Q1

REPORT INFORMATION
  Report Type: Spontaneous
  Country: US (occurrence: US)
  Receive Date: 20130827
  Receipt Date: 20150211
  Transmission Date: 20150721
  Serious: Yes (Hospitalization)
  Sender: FDA-Public Use
  Company Number: US-BAYER-2013-103193

PATIENT
  Age: 53 Year
  Sex: Female
  Weight: 81.18 kg

DRUGS (5)
  1. SIMVASTATIN. [Concomitant]
     Active Substance: SIMVASTATIN
  2. YAZ [Suspect]
     Active Substance: DROSPIRENONE\ETHINYL ESTRADIOL
     Indication: PREMENSTRUAL SYNDROME
     Dosage: UNK
     Dates: start: 20081002, end: 20081112
  3. SYNTHROID [Concomitant]
     Active Substance: LEVOTHYROXINE SODIUM
     Dosage: 0.05 MG, DAILY
     Route: 048
     Dates: start: 20080826, end: 20081023
  4. TEMAZEPAM. [Concomitant]
     Active Substance: TEMAZEPAM
     Dosage: 15 MG, HS
  5. ZOCOR [Concomitant]
     Active Substance: SIMVASTATIN

REACTIONS (11)
  - Psychological trauma [None]
  - Cerebrovascular accident [None]
  - General physical health deterioration [None]
  - Pain [None]
  - Cerebral infarction [None]
  - Injury [None]
  - Emotional distress [None]
  - Anhedonia [None]
  - Cognitive disorder [None]
  - Fear [None]
  - Anxiety [None]

NARRATIVE: CASE EVENT DATE: 20081112
